FAERS Safety Report 21051829 (Version 1)
Quarter: 2022Q3

REPORT INFORMATION
  Report Type: Spontaneous
  Country: FR (occurrence: FR)
  Receive Date: 20220707
  Receipt Date: 20220707
  Transmission Date: 20221027
  Serious: Yes (Hospitalization, Congenital Anomaly, Other)
  Sender: FDA-Public Use
  Company Number: FR-ABBVIE-22K-056-4456828-00

PATIENT
  Age: 0 Year
  Sex: Male
  Weight: 2.588 kg

DRUGS (1)
  1. DEPAKENE [Suspect]
     Active Substance: VALPROIC ACID
     Indication: Maternal exposure timing unspecified
     Route: 064

REACTIONS (38)
  - Craniosynostosis [Recovered/Resolved]
  - Dysmorphism [Unknown]
  - Congenital arterial malformation [Unknown]
  - Behaviour disorder [Unknown]
  - Motor dysfunction [Unknown]
  - Scoliosis [Unknown]
  - Cognitive disorder [Unknown]
  - Dyspraxia [Unknown]
  - Faecaloma [Unknown]
  - Low set ears [Unknown]
  - Musculoskeletal stiffness [Unknown]
  - Congenital central nervous system anomaly [Unknown]
  - Constipation [Unknown]
  - Atrial septal defect [Not Recovered/Not Resolved]
  - Hypotonia [Unknown]
  - Hypertonia [Unknown]
  - Cryptorchism [Unknown]
  - Cardiac aneurysm [Unknown]
  - Coordination abnormal [Unknown]
  - Cryptorchism [Unknown]
  - Visuospatial deficit [Unknown]
  - Exomphalos [Unknown]
  - Fine motor skill dysfunction [Unknown]
  - Dysgraphia [Unknown]
  - Refraction disorder [Unknown]
  - Disease risk factor [Unknown]
  - Encopresis [Unknown]
  - Social problem [Unknown]
  - Craniosynostosis [Unknown]
  - Migraine [Unknown]
  - Developmental coordination disorder [Unknown]
  - Loss of personal independence in daily activities [Unknown]
  - Enuresis [Unknown]
  - Bradyphrenia [Unknown]
  - Impaired reasoning [Unknown]
  - Hyperacusis [Unknown]
  - Foetal exposure during pregnancy [Unknown]
  - Amenorrhoea [Unknown]

NARRATIVE: CASE EVENT DATE: 20010201
